FAERS Safety Report 5853269-0 (Version None)
Quarter: 2008Q3

REPORT INFORMATION
  Report Type: 
  Country: None (occurrence: None)
  Receive Date: 20080820
  Receipt Date: 20080806
  Transmission Date: 20090109
  Serious: Yes (Hospitalization)
  Sender: FDA-Public Use
  Company Number: FLCT20080134

PATIENT
  Age: 49 Year
  Sex: Female
  Weight: 88.4514 kg

DRUGS (2)
  1. FLECTOR [Suspect]
     Indication: PAIN
     Dosage: 2 PATCHES Q12H, TOPICAL
     Route: 061
     Dates: start: 20080521, end: 20080528
  2. TYLENOL W/ CODEINE NO. 3 [Suspect]
     Indication: PAIN
     Dosage: 1-2 TABLETS Q4-6H, PER ORAL
     Route: 048
     Dates: start: 20070830

REACTIONS (3)
  - INCORRECT DOSE ADMINISTERED [None]
  - INTESTINAL OBSTRUCTION [None]
  - POSTOPERATIVE ADHESION [None]
